FAERS Safety Report 20814737 (Version 1)
Quarter: 2022Q2

REPORT INFORMATION
  Report Type: Spontaneous
  Country: US (occurrence: None)
  Receive Date: 20220511
  Receipt Date: 20220511
  Transmission Date: 20220721
  Serious: Yes (Hospitalization)
  Sender: FDA-Public Use
  Company Number: None

PATIENT
  Age: 3 Year
  Sex: Female
  Weight: 14.9 kg

DRUGS (21)
  1. CARBOPLATIN [Suspect]
     Active Substance: CARBOPLATIN
     Dates: end: 20220403
  2. ETOPOSIDE [Suspect]
     Active Substance: ETOPOSIDE
     Dates: end: 20220403
  3. MELPHALAN [Suspect]
     Active Substance: MELPHALAN
     Dates: end: 20220402
  4. FILGRASTIM [Suspect]
     Active Substance: FILGRASTIM
     Dates: end: 20220419
  5. ACETAMINOPHEN [Concomitant]
     Active Substance: ACETAMINOPHEN
  6. ACYCLOVIR [Concomitant]
     Active Substance: ACYCLOVIR
  7. caspofugin [Concomitant]
  8. DEFIBROTIDE [Concomitant]
     Active Substance: DEFIBROTIDE (BOVINE)
  9. DEXAMETHASONE [Concomitant]
     Active Substance: DEXAMETHASONE
  10. DEXMEDETOMIDINE [Concomitant]
     Active Substance: DEXMEDETOMIDINE
  11. DIMENHYDRINATE [Concomitant]
     Active Substance: DIMENHYDRINATE
  12. FUROSEMIDE [Concomitant]
     Active Substance: FUROSEMIDE
  13. GABAPENTIN [Concomitant]
     Active Substance: GABAPENTIN
  14. HYDROMORPHONE [Concomitant]
     Active Substance: HYDROMORPHONE
  15. MELATONIN [Concomitant]
     Active Substance: MELATONIN
  16. MEROPENEM [Concomitant]
     Active Substance: MEROPENEM
  17. ONDANSETRON [Concomitant]
     Active Substance: ONDANSETRON
  18. PIPERACILLIN AND TAZOBACTAM [Concomitant]
     Active Substance: PIPERACILLIN SODIUM\TAZOBACTAM SODIUM
  19. propofol-remifentanil [Concomitant]
  20. URSODIOL [Concomitant]
     Active Substance: URSODIOL
  21. VANCOMYCIN [Concomitant]
     Active Substance: VANCOMYCIN

REACTIONS (2)
  - Venoocclusive liver disease [None]
  - Restrictive pulmonary disease [None]

NARRATIVE: CASE EVENT DATE: 20220413
